FAERS Safety Report 4295008-3 (Version None)
Quarter: 2004Q1

REPORT INFORMATION
  Report Type: 
  Country: None (occurrence: None)
  Receive Date: 20040216
  Receipt Date: 20040210
  Transmission Date: 20041129
  Serious: Yes (Hospitalization, Other)
  Sender: FDA-Public Use
  Company Number: 200411041US

PATIENT
  Sex: Male

DRUGS (5)
  1. LANTUS [Suspect]
     Dosage: DOSE: UNK
  2. HUMALOG [Concomitant]
     Dosage: DOSE: UNK
  3. NOVALOG [Concomitant]
     Dosage: DOSE: UNK
  4. REGULAR INSULIN [Concomitant]
     Dosage: DOSE: UNK
  5. CORTICOSTEROIDS [Concomitant]
     Dosage: DOSE: UNK

REACTIONS (2)
  - HOSPITALISATION [None]
  - HYPOGLYCAEMIA [None]
